FAERS Safety Report 18015482 (Version 1)
Quarter: 2020Q3

REPORT INFORMATION
  Report Type: Spontaneous
  Country: PT (occurrence: PT)
  Receive Date: 20200713
  Receipt Date: 20200713
  Transmission Date: 20201103
  Serious: Yes (Other)
  Sender: FDA-Public Use
  Company Number: PT-BAYER-2020-138686

PATIENT
  Age: 23 Year
  Sex: Male
  Weight: 67 kg

DRUGS (2)
  1. ULTRAVIST [Suspect]
     Active Substance: IOPROMIDE
     Indication: ANGIOGRAM
     Dosage: 70 ML, ONCE
     Route: 042
     Dates: start: 20200622, end: 20200622
  2. ULTRAVIST [Suspect]
     Active Substance: IOPROMIDE
     Indication: CORONARY ARTERY DISEASE

REACTIONS (3)
  - Throat tightness [Recovered/Resolved]
  - Dysphonia [Recovered/Resolved]
  - Tremor [Recovered/Resolved]

NARRATIVE: CASE EVENT DATE: 20200622
